FAERS Safety Report 12157806 (Version 1)
Quarter: 2016Q1

REPORT INFORMATION
  Report Type: Spontaneous
  Country: US (occurrence: None)
  Receive Date: 20160307
  Receipt Date: 20160307
  Transmission Date: 20160526
  Serious: Yes (Other)
  Sender: FDA-Public Use
  Company Number: None

PATIENT
  Age: 39 Year
  Sex: Female
  Weight: 72.58 kg

DRUGS (11)
  1. PRENATAL VITAMIN [Concomitant]
     Active Substance: VITAMINS
  2. ARMOUR THYROID [Concomitant]
     Active Substance: THYROID, PORCINE
  3. ZOLOFT [Concomitant]
     Active Substance: SERTRALINE HYDROCHLORIDE
  4. VITAMIN B12 [Concomitant]
     Active Substance: CYANOCOBALAMIN
  5. TRAMADOL. [Suspect]
     Active Substance: TRAMADOL
     Indication: MIGRAINE
     Dosage: 1-2 TABLETS FOUR TIMES DAILY TAKEN BY MOUTH
     Route: 048
     Dates: start: 20160201, end: 20160212
  6. VITAMIN D3 [Concomitant]
     Active Substance: CHOLECALCIFEROL
  7. MAGNESIUM [Concomitant]
     Active Substance: MAGNESIUM
  8. KETOROLAC [Concomitant]
     Active Substance: KETOROLAC\KETOROLAC TROMETHAMINE
  9. PROMETHAZINE [Concomitant]
     Active Substance: PROMETHAZINE\PROMETHAZINE HYDROCHLORIDE
  10. COMPAZINE [Concomitant]
     Active Substance: PROCHLORPERAZINE MALEATE
  11. CYCLOBENZAPRINE [Concomitant]
     Active Substance: CYCLOBENZAPRINE

REACTIONS (3)
  - Seizure [None]
  - Drug ineffective [None]
  - Dissociation [None]

NARRATIVE: CASE EVENT DATE: 20160212
